FAERS Safety Report 10102829 (Version 1)
Quarter: 2014Q2

REPORT INFORMATION
  Report Type: Spontaneous
  Country: US (occurrence: US)
  Receive Date: 20140424
  Receipt Date: 20140424
  Transmission Date: 20141212
  Serious: No
  Sender: FDA-Public Use
  Company Number: US-BRISTOL-MYERS SQUIBB COMPANY-20562112

PATIENT
  Age: 90 Year
  Sex: Male

DRUGS (6)
  1. ELIQUIS [Suspect]
     Dosage: DOSE SWITCHED TO 2.5MG TWICE A DAY.
  2. RAMIPRIL [Concomitant]
  3. CRESTOR [Concomitant]
  4. LEVOTHYROXINE [Concomitant]
  5. MULTIVITAMINS [Concomitant]
  6. VITAMIN D [Concomitant]

REACTIONS (1)
  - Wrong technique in drug usage process [Unknown]
